FAERS Safety Report 7053457-4 (Version None)
Quarter: 2010Q4

REPORT INFORMATION
  Report Type: 
  Country: None (occurrence: None)
  Receive Date: 20101013
  Receipt Date: 20101005
  Transmission Date: 20110411
  Serious: Yes (Other)
  Sender: FDA-Public Use
  Company Number: 2010SP043798

PATIENT
  Age: 12 Year
  Sex: Male
  Weight: 43 kg

DRUGS (13)
  1. POSACONAZOLE [Suspect]
     Indication: ANTIFUNGAL PROPHYLAXIS
     Dosage: 200 MG;TID;PO
     Route: 048
     Dates: start: 20100728, end: 20100811
  2. URSOSAN [Concomitant]
  3. HEPATIL [Concomitant]
  4. METRONIDASOLI [Concomitant]
  5. LANZOSTAD [Concomitant]
  6. SINGULAIR [Concomitant]
  7. RANIDITINI [Concomitant]
  8. LEXATONILI [Concomitant]
  9. SOL. MITILPREDNIZALONI [Concomitant]
  10. SOL. CIKLOSPORINI [Concomitant]
  11. HEXOTIDI [Concomitant]
  12. ENAP [Concomitant]
  13. FUZODINI [Concomitant]

REACTIONS (3)
  - DRUG INTERACTION [None]
  - DRUG TOXICITY [None]
  - RENAL FAILURE [None]
